FAERS Safety Report 7540791-4 (Version None)
Quarter: 2011Q2

REPORT INFORMATION
  Report Type: 
  Country: None (occurrence: None)
  Receive Date: 20110603
  Receipt Date: 20110525
  Transmission Date: 20111010
  Serious: Yes (Death, Life-Threatening)
  Sender: FDA-Public Use
  Company Number: 0218869

PATIENT
  Age: 76 Year
  Sex: Male

DRUGS (1)
  1. TACHOSIL [Suspect]
     Indication: SURGERY
     Dates: start: 20101201

REACTIONS (3)
  - ANASTOMOTIC LEAK [None]
  - SEPSIS [None]
  - PANCREATIC FISTULA [None]
